FAERS Safety Report 12844057 (Version 1)
Quarter: 2016Q4

REPORT INFORMATION
  Report Type: Spontaneous
  Country: US (occurrence: US)
  Receive Date: 20161012
  Receipt Date: 20161012
  Transmission Date: 20170207
  Serious: Yes (Disabling)
  Sender: FDA-Public Use
  Company Number: None

PATIENT
  Age: 57 Year
  Sex: Female
  Weight: 95.85 kg

DRUGS (11)
  1. CROMOLYN [Concomitant]
     Active Substance: CROMOLYN
  2. SINGULAIR [Concomitant]
     Active Substance: MONTELUKAST SODIUM
  3. ATROVENT [Concomitant]
     Active Substance: IPRATROPIUM BROMIDE
  4. TYLENOL [Concomitant]
     Active Substance: ACETAMINOPHEN
  5. ZYZAL [Concomitant]
  6. EPINEPHRINE. [Suspect]
     Active Substance: EPINEPHRINE
     Indication: HYPERSENSITIVITY
     Dates: start: 20160813
  7. EPIPEN [Concomitant]
     Active Substance: EPINEPHRINE
  8. METFORMIN [Concomitant]
     Active Substance: METFORMIN HYDROCHLORIDE
  9. DETROL [Concomitant]
     Active Substance: TOLTERODINE TARTRATE
  10. PEPCID [Concomitant]
     Active Substance: FAMOTIDINE
  11. MEDROL [Concomitant]
     Active Substance: METHYLPREDNISOLONE

REACTIONS (3)
  - Brain injury [None]
  - Psychomotor skills impaired [None]
  - Dysarthria [None]

NARRATIVE: CASE EVENT DATE: 20160813
